FAERS Safety Report 7994884 (Version 3)
Quarter: 2012Q4

REPORT INFORMATION
  Report Type: 
  Country: BR (occurrence: BR)
  Receive Date: 20110616
  Receipt Date: 20121017
  Transmission Date: 20130627
  Serious: Yes (Disabling, Other)
  Sender: FDA-Public Use
  Company Number: BR-PFIZER INC-2011098725

PATIENT
  Age: 81 Year
  Sex: Female
  Weight: 50 kg

DRUGS (10)
  1. CHAMPIX [Suspect]
     Indication: SMOKING CESSATION THERAPY
     Dosage: UNK
     Route: 048
     Dates: start: 20110429, end: 2011
  2. CHAMPIX [Suspect]
     Dosage: 1 mg, 1x/day
     Route: 048
     Dates: start: 2011, end: 2011
  3. CHAMPIX [Suspect]
     Dosage: UNK
     Route: 048
     Dates: start: 2011, end: 2011
  4. CHAMPIX [Suspect]
     Dosage: one tablet, every 12 hours
     Route: 048
     Dates: start: 2011, end: 201105
  5. CHAMPIX [Suspect]
     Dosage: UNK
     Route: 048
     Dates: start: 20120110, end: 2012
  6. CHAMPIX [Suspect]
     Dosage: one tablet, twice daily
     Route: 048
     Dates: start: 2012, end: 2012
  7. AMLODIPINE [Concomitant]
     Indication: HYPERTENSION
     Dosage: 2.5 mg, 1x/day
     Dates: start: 2008
  8. LINSEED OIL [Concomitant]
     Indication: ROUTINE HEALTH MAINTENANCE
     Dosage: one tablet (unspecified dosage) twice daily
     Dates: start: 2008
  9. VITAMIN D [Concomitant]
     Indication: ROUTINE HEALTH MAINTENANCE
     Dosage: UNK(15 drops), daily
     Dates: start: 2008
  10. ARADOIS H [Concomitant]
     Indication: BLOOD PRESSURE ABNORMAL
     Dosage: 1 tablet (50/12.5), 1x/day

REACTIONS (13)
  - Depression [Recovering/Resolving]
  - Feeling abnormal [Recovering/Resolving]
  - Vomiting [Recovering/Resolving]
  - Tooth disorder [Recovering/Resolving]
  - Nausea [Unknown]
  - Dizziness [Unknown]
  - Gastric disorder [Unknown]
  - Retching [Unknown]
  - Asthenia [Unknown]
  - Fatigue [Unknown]
  - Malaise [Unknown]
  - Abdominal pain upper [Unknown]
  - Anxiety [Unknown]
